FAERS Safety Report 6561476-7 (Version None)
Quarter: 2010Q1

REPORT INFORMATION
  Report Type: 
  Country: None (occurrence: None)
  Receive Date: 20100130
  Receipt Date: 20091013
  Transmission Date: 20100710
  Serious: No
  Sender: FDA-Public Use
  Company Number: US-ABBOTT-09P-163-0603322-00

PATIENT
  Sex: Male
  Weight: 62.198 kg

DRUGS (11)
  1. HUMIRA [Suspect]
     Indication: CROHN'S DISEASE
     Route: 058
     Dates: start: 20090908
  2. HUMIRA [Suspect]
     Indication: FISTULA
  3. FOLIC ACID [Concomitant]
     Indication: DRUG USE FOR UNKNOWN INDICATION
     Route: 048
  4. TOPAMAX [Concomitant]
     Indication: MIGRAINE
     Route: 048
  5. ENTOCORT EC [Concomitant]
     Indication: CROHN'S DISEASE
     Route: 048
  6. ENTOCORT EC [Concomitant]
     Indication: FISTULA
  7. LIALDA [Concomitant]
     Indication: CROHN'S DISEASE
  8. LIALDA [Concomitant]
     Indication: FISTULA
  9. CIPRO [Concomitant]
     Indication: FISTULA
     Route: 048
  10. MULTI-VITAMIN [Concomitant]
     Indication: VITAMIN SUPPLEMENTATION
     Route: 048
  11. BACTRIM [Concomitant]
     Indication: FISTULA
     Route: 048

REACTIONS (4)
  - DECREASED APPETITE [None]
  - DYSGEUSIA [None]
  - PAROSMIA [None]
  - WEIGHT DECREASED [None]
